FAERS Safety Report 4556491-9 (Version None)
Quarter: 2005Q1

REPORT INFORMATION
  Report Type: 
  Country: None (occurrence: None)
  Receive Date: 20050118
  Receipt Date: 20050105
  Transmission Date: 20050727
  Serious: Yes (Hospitalization)
  Sender: FDA-Public Use
  Company Number: HQWYE451610JAN05

PATIENT
  Age: 66 Year
  Sex: Male
  Weight: 92.89 kg

DRUGS (18)
  1. RAPAMUNE [Suspect]
     Indication: PROPHYLAXIS AGAINST TRANSPLANT REJECTION
     Dosage: 5 MG 1X PER 1 DAY, ORAL
     Route: 048
     Dates: start: 20040128
  2. PROGRAF [Suspect]
     Dosage: 7 MG 2X PER 1 DAY
     Dates: end: 20050101
  3. ACYCLOVIR [Concomitant]
  4. ARANESP [Concomitant]
  5. AVAPRO [Concomitant]
  6. CARDIZEM CD [Concomitant]
  7. CLONIDINE [Concomitant]
  8. COUMADIN [Concomitant]
  9. DARVOCET-N (DEXTROPROPOXYPHENE/PARACETAMOL) [Concomitant]
  10. FLOMAX [Concomitant]
  11. GLUCOTROL XL [Concomitant]
  12. LASIX [Concomitant]
  13. LIPITOR [Concomitant]
  14. MAGNESIUM OXIDE (MAGNESIUM OXIDE) [Concomitant]
  15. OS-CAL + D (CALCIUM CARBONATE/COLECALCIFEROL) [Concomitant]
  16. PREDNISONE [Concomitant]
  17. PROTONIX [Concomitant]
  18. SODIUM BICARBONATE IN PLASTIC CONTAINER [Concomitant]

REACTIONS (13)
  - BLOOD ALBUMIN DECREASED [None]
  - BLOOD GLUCOSE INCREASED [None]
  - BLOOD PRESSURE DIASTOLIC INCREASED [None]
  - DRUG INEFFECTIVE [None]
  - HAEMATOCRIT DECREASED [None]
  - HAEMODIALYSIS [None]
  - HEPATITIS B ANTIBODY POSITIVE [None]
  - KIDNEY TRANSPLANT REJECTION [None]
  - LYMPHOCYTE COUNT DECREASED [None]
  - PROTEIN TOTAL DECREASED [None]
  - RED BLOOD CELL COUNT DECREASED [None]
  - RED CELL DISTRIBUTION WIDTH DECREASED [None]
  - TRANSPLANT FAILURE [None]
